FAERS Safety Report 5365355-2 (Version None)
Quarter: 2007Q2

REPORT INFORMATION
  Report Type: 
  Country: None (occurrence: None)
  Receive Date: 20070621
  Receipt Date: 20070615
  Transmission Date: 20071010
  Serious: Yes (Death)
  Sender: FDA-Public Use
  Company Number: PHBS2007BR10100

PATIENT
  Sex: Female

DRUGS (1)
  1. FEMARA [Suspect]
     Indication: BREAST CANCER
     Route: 048

REACTIONS (2)
  - MENINGEAL NEOPLASM [None]
  - NEOPLASM MALIGNANT [None]
